FAERS Safety Report 4313508-4 (Version None)
Quarter: 2004Q1

REPORT INFORMATION
  Report Type: 
  Country: None (occurrence: None)
  Receive Date: 20040304
  Receipt Date: 20040217
  Transmission Date: 20041129
  Serious: Yes (Hospitalization)
  Sender: FDA-Public Use
  Company Number: US_031198663

PATIENT
  Age: 63 Year
  Sex: Male

DRUGS (15)
  1. PEMETREXED [Suspect]
     Indication: MESOTHELIOMA
     Dosage: 1000 MG
     Dates: start: 20030630, end: 20031119
  2. FOLIC ACID [Concomitant]
  3. VITAMIN B-12 [Concomitant]
  4. DECADRON [Concomitant]
  5. NEULASTA [Concomitant]
  6. COLACE (DOCUSATE SODIUM) [Concomitant]
  7. TYLENOL [Concomitant]
  8. OXYCODONE [Concomitant]
  9. LESCOL [Concomitant]
  10. COUMADIN [Concomitant]
  11. ZOFRAN [Concomitant]
  12. FLORINEF [Concomitant]
  13. DIGOXIN [Concomitant]
  14. PULMICORT [Concomitant]
  15. BISOPROLOL [Concomitant]

REACTIONS (15)
  - BLOOD ALKALINE PHOSPHATASE INCREASED [None]
  - BLOOD GLUCOSE INCREASED [None]
  - CARDIAC TAMPONADE [None]
  - COAGULOPATHY [None]
  - DISEASE PROGRESSION [None]
  - DRUG INTERACTION [None]
  - DYSPNOEA [None]
  - HAEMATOCRIT DECREASED [None]
  - HAEMOGLOBIN DECREASED [None]
  - INTERNATIONAL NORMALISED RATIO INCREASED [None]
  - MESOTHELIOMA [None]
  - NEUTROPHIL COUNT INCREASED [None]
  - PERICARDIAL EFFUSION [None]
  - PROTHROMBIN TIME PROLONGED [None]
  - WHITE BLOOD CELL COUNT INCREASED [None]
